FAERS Safety Report 20954213 (Version 1)
Quarter: 2022Q2

REPORT INFORMATION
  Report Type: Report from Study
  Country: ES (occurrence: ES)
  Receive Date: 20220614
  Receipt Date: 20220614
  Transmission Date: 20220720
  Serious: Yes (Hospitalization, Other)
  Sender: FDA-Public Use
  Company Number: ES-SA-SAC20220330001693

PATIENT
  Age: 79 Year
  Sex: Male
  Weight: 79.7 kg

DRUGS (1)
  1. INSULIN GLARGINE [Suspect]
     Active Substance: INSULIN GLARGINE
     Indication: Type 2 diabetes mellitus
     Dosage: 8 IU
     Route: 058
     Dates: start: 20210503

REACTIONS (5)
  - Hypotension [Recovered/Resolved]
  - Lung neoplasm malignant [Recovered/Resolved]
  - Oxygen saturation decreased [Recovered/Resolved]
  - Illness [Recovered/Resolved]
  - Blood glucose increased [Recovered/Resolved]

NARRATIVE: CASE EVENT DATE: 20220302
